FAERS Safety Report 8228846-2 (Version None)
Quarter: 2012Q1

REPORT INFORMATION
  Report Type: 
  Country: None (occurrence: None)
  Receive Date: 20120322
  Receipt Date: 20120314
  Transmission Date: 20120608
  Serious: Yes (Other)
  Sender: FDA-Public Use
  Company Number: IT-GLAXOSMITHKLINE-B0790148A

PATIENT
  Age: 45 Year
  Sex: Female

DRUGS (2)
  1. BACTROBAN [Suspect]
     Indication: FUNGAL INFECTION
     Route: 065
  2. ANTIMYCOTIC [Concomitant]

REACTIONS (3)
  - RASH PUSTULAR [None]
  - HYPERSENSITIVITY [None]
  - PRURITUS [None]
